FAERS Safety Report 14082672 (Version 1)
Quarter: 2017Q4

REPORT INFORMATION
  Report Type: Spontaneous
  Country: US (occurrence: US)
  Receive Date: 20171012
  Receipt Date: 20171012
  Transmission Date: 20180321
  Serious: No
  Sender: FDA-Public Use
  Company Number: US-MYLANLABS-2017M1053187

PATIENT
  Age: 64 Year
  Sex: Male
  Weight: 105 kg

DRUGS (3)
  1. VALACICLOVIR [Suspect]
     Active Substance: VALACYCLOVIR HYDROCHLORIDE
     Indication: ORAL HERPES
     Dosage: 4 DF, BID
     Dates: start: 20170731
  2. ABREVA [Concomitant]
     Active Substance: DOCOSANOL
     Indication: PRODUCT USED FOR UNKNOWN INDICATION
     Dosage: UNK
     Dates: start: 201707
  3. VALACICLOVIR [Suspect]
     Active Substance: VALACYCLOVIR HYDROCHLORIDE
     Dosage: 1 G, TID
     Dates: start: 20170830

REACTIONS (4)
  - Hypoaesthesia [Recovering/Resolving]
  - Paraesthesia oral [Recovering/Resolving]
  - Paraesthesia [Recovering/Resolving]
  - Hypoaesthesia oral [Recovering/Resolving]

NARRATIVE: CASE EVENT DATE: 201708
